FAERS Safety Report 6796221-3 (Version None)
Quarter: 2010Q2

REPORT INFORMATION
  Report Type: 
  Country: None (occurrence: None)
  Receive Date: 20100624
  Receipt Date: 20100624
  Transmission Date: 20101027
  Serious: Yes (Other)
  Sender: FDA-Public Use
  Company Number: None

PATIENT
  Age: 56 Year
  Sex: Female
  Weight: 58.0604 kg

DRUGS (1)
  1. RESTASIS [Suspect]
     Indication: DRY EYE
     Dosage: ONE DROP IN BOTH EYES TWICE DAILY OPHTHALMIC
     Route: 047
     Dates: start: 20100204, end: 20100622

REACTIONS (1)
  - EYE IRRITATION [None]
